FAERS Safety Report 6719178-X (Version None)
Quarter: 2010Q2

REPORT INFORMATION
  Report Type: 
  Country: None (occurrence: None)
  Receive Date: 20100511
  Receipt Date: 20100507
  Transmission Date: 20101027
  Serious: No
  Sender: FDA-Public Use
  Company Number: US-ROXANE LABORATORIES, INC.-2010-RO-00552RO

PATIENT
  Sex: Female
  Weight: 96 kg

DRUGS (21)
  1. CODEINE SUL TAB [Suspect]
  2. AMLODIPINE [Suspect]
  3. CLOTRIMAZOLE [Suspect]
  4. HYDROMORPHONE HCL [Suspect]
  5. LORAZEPAM [Suspect]
  6. ONDANSETRON [Suspect]
  7. SORAFENIB [Concomitant]
     Indication: ADRENOCORTICAL CARCINOMA
     Dosage: 800 MG
  8. PERCOCET [Concomitant]
  9. ZYRTEC [Concomitant]
  10. CLONIDINE [Concomitant]
  11. DOCUSATE [Concomitant]
  12. FAMOTIDINE [Concomitant]
  13. HYDROXYZINE [Concomitant]
  14. TRIAMTERENE AND HYDROCHLOROTHIAZIDE [Concomitant]
  15. LISINOPRIL [Concomitant]
  16. METOPROLOL [Concomitant]
  17. NYSTATIN [Concomitant]
     Route: 031
  18. COMPAZINE [Concomitant]
  19. SPIRONOLACTONE [Concomitant]
  20. TRIAMCINOLONE [Concomitant]
  21. VALSARTAN [Concomitant]

REACTIONS (8)
  - BACK PAIN [None]
  - CUSHINGOID [None]
  - ERYTHEMA [None]
  - HALLUCINATION [None]
  - LACRIMATION INCREASED [None]
  - ORAL CANDIDIASIS [None]
  - TEMPERATURE INTOLERANCE [None]
  - WEIGHT INCREASED [None]
